FAERS Safety Report 10418873 (Version 1)
Quarter: 2014Q3

REPORT INFORMATION
  Report Type: Spontaneous
  Country: US (occurrence: US)
  Receive Date: 20140829
  Receipt Date: 20140829
  Transmission Date: 20150326
  Serious: No
  Sender: FDA-Public Use
  Company Number: US-ASTRAZENECA-2014SE08948

PATIENT
  Age: 23 Year
  Sex: Male

DRUGS (2)
  1. MERREM [Suspect]
     Active Substance: MEROPENEM
     Indication: FEBRILE NEUTROPENIA
     Route: 042
  2. MICAFUNGIN [Suspect]
     Active Substance: MICAFUNGIN
     Route: 065

REACTIONS (2)
  - Blood bilirubin increased [Unknown]
  - Off label use [Unknown]
